FAERS Safety Report 5521816-4 (Version None)
Quarter: 2007Q4

REPORT INFORMATION
  Report Type: 
  Country: None (occurrence: None)
  Receive Date: 20071120
  Receipt Date: 20071108
  Transmission Date: 20080405
  Serious: Yes (Hospitalization, Other)
  Sender: FDA-Public Use
  Company Number: US-WYE-H01146407

PATIENT
  Sex: Male
  Weight: 100 kg

DRUGS (3)
  1. MYLOTARG [Suspect]
     Indication: ACUTE MYELOID LEUKAEMIA
     Dosage: TOTAL OF 12 MG  WAS GIVEN
     Dates: start: 20070512, end: 20070512
  2. MYLOTARG [Suspect]
     Route: 042
     Dates: start: 20071009, end: 20071009
  3. LEUKINE [Suspect]
     Indication: PROPHYLAXIS
     Dosage: 6500 MG
     Dates: start: 20071016, end: 20071028

REACTIONS (6)
  - CHILLS [None]
  - MYALGIA [None]
  - NEUTROPENIA [None]
  - PYREXIA [None]
  - RASH ERYTHEMATOUS [None]
  - SERUM SICKNESS [None]
